FAERS Safety Report 4361435-9 (Version None)
Quarter: 2004Q2

REPORT INFORMATION
  Report Type: 
  Country: None (occurrence: None)
  Receive Date: 20040519
  Receipt Date: 20040519
  Transmission Date: 20050107
  Serious: Yes (Hospitalization, Disabling, Other)
  Sender: FDA-Public Use
  Company Number: None

PATIENT
  Age: 45 Year
  Sex: Female
  Weight: 68.0396 kg

DRUGS (4)
  1. FIORICET [Suspect]
     Indication: BACK PAIN
     Dosage: OVER DOSED COULDN'T REMEMBER
     Dates: start: 19890101, end: 19950101
  2. FIORICET [Suspect]
     Indication: DENTAL DISCOMFORT
     Dosage: OVER DOSED COULDN'T REMEMBER
     Dates: start: 19890101, end: 19950101
  3. FIORICET [Suspect]
     Indication: MIGRAINE
     Dosage: OVER DOSED COULDN'T REMEMBER
     Dates: start: 19890101, end: 19950101
  4. FIORICET [Suspect]
     Indication: PAIN
     Dosage: OVER DOSED COULDN'T REMEMBER
     Dates: start: 19890101, end: 19950101

REACTIONS (7)
  - ACCIDENT [None]
  - AMNESIA [None]
  - BACK PAIN [None]
  - BRAIN DAMAGE [None]
  - CONFUSIONAL STATE [None]
  - MIGRAINE [None]
  - WEIGHT DECREASED [None]
